FAERS Safety Report 8332998-3 (Version None)
Quarter: 2012Q2

REPORT INFORMATION
  Report Type: 
  Country: None (occurrence: None)
  Receive Date: 20120503
  Receipt Date: 20120425
  Transmission Date: 20120825
  Serious: Yes (Other)
  Sender: FDA-Public Use
  Company Number: PHHY2012CA036330

PATIENT
  Sex: Female

DRUGS (3)
  1. DOCETAXEL [Concomitant]
  2. EXEMESTANE [Concomitant]
  3. FEMARA [Suspect]
     Route: 048

REACTIONS (2)
  - CONCOMITANT DISEASE PROGRESSION [None]
  - BREAST CANCER [None]
